FAERS Safety Report 14829479 (Version 2)
Quarter: 2018Q2

REPORT INFORMATION
  Report Type: Spontaneous
  Country: FR (occurrence: FR)
  Receive Date: 20180430
  Receipt Date: 20180510
  Transmission Date: 20180711
  Serious: Yes (Hospitalization, Other)
  Sender: FDA-Public Use
  Company Number: FR-GLAXOSMITHKLINE-FR2018069276

PATIENT
  Age: 10 Year
  Sex: Male
  Weight: 25 kg

DRUGS (17)
  1. VITALIPIDE ENFANTS [Suspect]
     Active Substance: .ALPHA.-TOCOPHEROL, DL-\ERGOCALCIFEROL\PHYTONADIONE\VITAMIN A PALMITATE
     Indication: PARENTERAL NUTRITION
     Dosage: 7 DAYS A WEEK, IV CENTRAL LINE (PORT-A-CATH), FORMULA: PCARL04L (WITHOUT VITAMIN K1)
     Route: 042
     Dates: start: 201803
  2. SODIUM CHLORIDE. [Suspect]
     Active Substance: SODIUM CHLORIDE
     Indication: PARENTERAL NUTRITION
     Dosage: 7 DAYS A WEEK, IV CENTRAL LINE (PORT-A-CATH), FORMULA: PCARL04LK (CONTAINED VITAMIN K1)
     Route: 042
     Dates: start: 201803
  3. SMOFLIPID [Suspect]
     Active Substance: FISH OIL\MEDIUM-CHAIN TRIGLYCERIDES\OLIVE OIL\SOYBEAN OIL
     Indication: PARENTERAL NUTRITION
     Dosage: 7 DAYS A WEEK, IV CENTRAL LINE (PORT-A-CATH), FORMULA: PCARL04L (WITHOUT VITAMIN K1)
     Route: 042
     Dates: start: 201803
  4. PHOCYTAN [Suspect]
     Active Substance: .ALPHA.-GLUCOSE-1-PHOSPHATE
     Dosage: 7 DAYS A WEEK, IV CENTRAL LINE (PORT-A-CATH), FORMULA: PCARL04L (WITHOUT VITAMIN K1)
     Route: 042
     Dates: start: 201803
  5. PHOCYTAN [Suspect]
     Active Substance: .ALPHA.-GLUCOSE-1-PHOSPHATE
     Indication: PARENTERAL NUTRITION
     Dosage: 7 DAYS A WEEK, IV CENTRAL LINE (PORT-A-CATH), FORMULA: PCARL04L (WITHOUT VITAMIN K1)
     Route: 042
     Dates: start: 201803
  6. SELENIUM SULFIDE. [Suspect]
     Active Substance: SELENIUM SULFIDE
     Indication: PARENTERAL NUTRITION
     Dosage: 7 DAYS A WEEK, IV CENTRAL LINE (PORT-A-CATH), FORMULA: PCARL04L (WITHOUT VITAMIN K1)
     Route: 042
     Dates: start: 201803
  7. PHOCYTAN [Suspect]
     Active Substance: .ALPHA.-GLUCOSE-1-PHOSPHATE
     Dosage: 7 DAYS A WEEK, IV CENTRAL LINE (PORT-A-CATH), FORMULA: PCARL04L (WITHOUT VITAMIN K1)
     Route: 042
     Dates: start: 201803
  8. PHOCYTAN [Suspect]
     Active Substance: .ALPHA.-GLUCOSE-1-PHOSPHATE
     Dosage: 7 DAYS A WEEK, IV CENTRAL LINE (PORT-A-CATH), FORMULA: PCARL04L (WITHOUT VITAMIN K1)
     Route: 042
     Dates: start: 201803
  9. MAGNESIUM CHLORIDE. [Suspect]
     Active Substance: MAGNESIUM CHLORIDE
     Dosage: 7 DAYS A WEEK, IV CENTRAL LINE (PORT-A-CATH), FORMULA: PCARL04L (WITHOUT VITAMIN K1)
     Route: 042
  10. VITAMIN K1 [Suspect]
     Active Substance: PHYTONADIONE
     Indication: PARENTERAL NUTRITION
     Dosage: RECEIVED AS PART OF TPN, ONLY IN FORMULA PCARL04LK, 7 DAYS A WEEK, IV CENTRAL LINE (PORT-A-CATH)
     Route: 042
     Dates: start: 201803
  11. RANITIDINE. [Suspect]
     Active Substance: RANITIDINE
     Indication: PARENTERAL NUTRITION
     Dosage: 7 DAYS A WEEK, IV CENTRAL LINE (PORT-A-CATH), FORMULA: PCARL04L (WITHOUT VITAMIN K1)
     Route: 042
     Dates: start: 201803
  12. CALCIUM GLUCONATE. [Suspect]
     Active Substance: CALCIUM GLUCONATE
     Indication: PARENTERAL NUTRITION
     Dosage: 7 DAYS A WEEK, IV CENTRAL LINE (PORT-A-CATH), FORMULA: PCARL04L (WITHOUT VITAMIN K1)
     Route: 042
     Dates: start: 201803
  13. HUMIRA [Concomitant]
     Active Substance: ADALIMUMAB
     Indication: PRODUCT USED FOR UNKNOWN INDICATION
     Dosage: UNK
     Route: 016
  14. SELENIUM SULFIDE. [Suspect]
     Active Substance: SELENIUM SULFIDE
     Dosage: 11 ML, QD
     Route: 042
     Dates: start: 201803
  15. GLUCOSE [Suspect]
     Active Substance: DEXTROSE
     Indication: PARENTERAL NUTRITION
     Dosage: 7 DAYS A WEEK, IV CENTRAL LINE (PORT-A-CATH), FORMULA: PCARL04LK (CONTAINED VITAMIN K1)
     Route: 042
     Dates: start: 201803
  16. POTASSIUM CHLORIDE. [Suspect]
     Active Substance: POTASSIUM CHLORIDE
     Indication: PARENTERAL NUTRITION
     Dosage: 7 DAYS A WEEK, IV CENTRAL LINE (PORT-A-CATH), FORMULA: PCARL04LK (CONTAINED VITAMIN K1)
     Route: 042
     Dates: start: 201803
  17. MAGNESIUM CHLORIDE. [Suspect]
     Active Substance: MAGNESIUM CHLORIDE
     Indication: PARENTERAL NUTRITION
     Dosage: 7 DAYS A WEEK, IV CENTRAL LINE (PORT-A-CATH), FORMULA: PCARL04LK (CONTAINED VITAMIN K1)
     Route: 042
     Dates: start: 201803

REACTIONS (3)
  - Lactobacillus test positive [Recovering/Resolving]
  - Device related infection [Recovering/Resolving]
  - Bacterial sepsis [Recovering/Resolving]

NARRATIVE: CASE EVENT DATE: 20180401
